FAERS Safety Report 5962654-8 (Version None)
Quarter: 2008Q4

REPORT INFORMATION
  Report Type: 
  Country: None (occurrence: None)
  Receive Date: 20081121
  Receipt Date: 20081119
  Transmission Date: 20090506
  Serious: Yes (Death, Other)
  Sender: FDA-Public Use
  Company Number: PHBS2008TW06402

PATIENT
  Age: 62 Year
  Sex: Male

DRUGS (4)
  1. CYCLOSPORINE [Suspect]
     Indication: HEART TRANSPLANT
     Route: 048
  2. PREDNISONE TAB [Suspect]
     Indication: HEART TRANSPLANT
     Dosage: 0.5 MG/KG/DAY
  3. PREDNISONE TAB [Suspect]
     Dosage: 0.2 MG/KG/DAY
  4. CELLCEPT [Suspect]
     Indication: HEART TRANSPLANT

REACTIONS (7)
  - ANGIOPATHY [None]
  - CARDIOVASCULAR DISORDER [None]
  - DIALYSIS [None]
  - HYPERGLYCAEMIA [None]
  - PYREXIA [None]
  - RENAL DISORDER [None]
  - SALMONELLOSIS [None]
